FAERS Safety Report 8309599-6 (Version None)
Quarter: 2012Q2

REPORT INFORMATION
  Report Type: 
  Country: None (occurrence: None)
  Receive Date: 20120423
  Receipt Date: 20120419
  Transmission Date: 20120825
  Serious: Yes (Hospitalization, Other)
  Sender: FDA-Public Use
  Company Number: ADR-2011-11855

PATIENT
  Sex: Male

DRUGS (2)
  1. LIORESAL [Suspect]
     Indication: MUSCLE SPASTICITY
     Dosage: INTRATH.
     Route: 037
  2. LIORESAL [Suspect]
     Indication: MULTIPLE SCLEROSIS
     Dosage: INTRATH.
     Route: 037

REACTIONS (4)
  - ENCEPHALOPATHY [None]
  - MENTAL STATUS CHANGES [None]
  - ENTEROCOCCAL INFECTION [None]
  - CULTURE POSITIVE [None]
